FAERS Safety Report 16987343 (Version 2)
Quarter: 2019Q4

REPORT INFORMATION
  Report Type: Spontaneous
  Country: US (occurrence: US)
  Receive Date: 20191102
  Receipt Date: 20191111
  Transmission Date: 20200122
  Serious: Yes (Hospitalization)
  Sender: FDA-Public Use
  Company Number: US-UNITED THERAPEUTICS-UNT-2019-018315

PATIENT
  Age: 64 Year
  Sex: Female
  Weight: 126.8 kg

DRUGS (1)
  1. REMODULIN [Suspect]
     Active Substance: TREPROSTINIL
     Indication: PULMONARY ARTERIAL HYPERTENSION
     Dosage: 0.055 ?G/KG, CONTINUING
     Route: 058
     Dates: start: 20190311

REACTIONS (3)
  - Pneumonia [Unknown]
  - Hypoxia [Unknown]
  - Dyspnoea [Unknown]

NARRATIVE: CASE EVENT DATE: 20191029
